FAERS Safety Report 12984559 (Version 2)
Quarter: 2016Q4

REPORT INFORMATION
  Report Type: Report from Study
  Country: None (occurrence: FR)
  Receive Date: 20161129
  Receipt Date: 20161206
  Transmission Date: 20170207
  Serious: Yes (Death, Hospitalization, Other)
  Sender: FDA-Public Use
  Company Number: FR-ABBVIE-16P-056-1788440-00

PATIENT
  Age: 81 Year
  Sex: Female
  Weight: 55 kg

DRUGS (4)
  1. LEVOTHYROXINE. [Concomitant]
     Active Substance: LEVOTHYROXINE
     Indication: HYPOTHYROIDISM
  2. ALLOPURINOL. [Concomitant]
     Active Substance: ALLOPURINOL
     Indication: HYPERURICAEMIA
     Route: 048
     Dates: start: 20160901
  3. AMIODARONE (CORDARONE) [Concomitant]
     Indication: ATRIAL FIBRILLATION
     Route: 048
     Dates: start: 20160902
  4. VENETOCLAX [Suspect]
     Active Substance: VENETOCLAX
     Indication: CHRONIC LYMPHOCYTIC LEUKAEMIA
     Route: 048
     Dates: start: 20161027, end: 20161103

REACTIONS (5)
  - Shock haemorrhagic [Fatal]
  - Richter^s syndrome [Unknown]
  - Thrombocytopenia [Fatal]
  - Gastrointestinal haemorrhage [Fatal]
  - Neutropenia [Unknown]

NARRATIVE: CASE EVENT DATE: 201611
